FAERS Safety Report 16175304 (Version 2)
Quarter: 2019Q2

REPORT INFORMATION
  Report Type: Report from Study
  Country: BR (occurrence: BR)
  Receive Date: 20190409
  Receipt Date: 20190423
  Transmission Date: 20190711
  Serious: Yes (Other)
  Sender: FDA-Public Use
  Company Number: PHHY2018BR064093

PATIENT
  Age: 87 Year
  Sex: Female
  Weight: 55 kg

DRUGS (5)
  1. SIMVASTATIN. [Suspect]
     Active Substance: SIMVASTATIN
     Indication: BLOOD CHOLESTEROL INCREASED
     Dosage: 1 DF, QD
     Route: 048
  2. ACLASTA [Suspect]
     Active Substance: ZOLEDRONIC ACID
     Indication: OSTEOPOROSIS
     Dosage: 1 DF, Q12MO
     Route: 042
     Dates: start: 2015
  3. LORAX [Concomitant]
     Indication: INSOMNIA
     Dosage: 1 DF, QD (25 YEARS AGO)
     Route: 048
  4. ACLASTA [Suspect]
     Active Substance: ZOLEDRONIC ACID
     Dosage: 1 DF, Q12MO
     Route: 042
     Dates: start: 2018
  5. BETALOR [Concomitant]
     Active Substance: AMLODIPINE BESYLATE\ATENOLOL
     Indication: HYPERTENSION
     Dosage: 1 DF, QD (4 YEARS AGO)
     Route: 048

REACTIONS (7)
  - Osteoporosis [Unknown]
  - Pruritus generalised [Unknown]
  - Gait disturbance [Not Recovered/Not Resolved]
  - Dizziness [Not Recovered/Not Resolved]
  - Fracture [Unknown]
  - Cerebrovascular accident [Recovered/Resolved]
  - Bone density decreased [Recovered/Resolved]

NARRATIVE: CASE EVENT DATE: 201806
